FAERS Safety Report 11860894 (Version 1)
Quarter: 2015Q4

REPORT INFORMATION
  Report Type: Spontaneous
  Country: DK (occurrence: FR)
  Receive Date: 20151222
  Receipt Date: 20151222
  Transmission Date: 20160305
  Serious: Yes (Other)
  Sender: FDA-Public Use
  Company Number: FR-FRI-1000081796

PATIENT
  Age: 80 Year
  Sex: Female

DRUGS (4)
  1. VERSATIS [Concomitant]
     Active Substance: LIDOCAINE
     Route: 062
  2. TRAMADOL. [Concomitant]
     Active Substance: TRAMADOL
     Indication: PRODUCT USED FOR UNKNOWN INDICATION
     Route: 065
  3. ESCITALOPRAM [Suspect]
     Active Substance: ESCITALOPRAM OXALATE
     Indication: NEURALGIA
     Dosage: 5 MG
     Route: 048
     Dates: start: 20151109, end: 20151115
  4. LYRICA [Concomitant]
     Active Substance: PREGABALIN
     Indication: PRODUCT USED FOR UNKNOWN INDICATION
     Dosage: 25 MG
     Route: 065

REACTIONS (7)
  - Balance disorder [Recovering/Resolving]
  - Walking disability [Unknown]
  - Coma [Unknown]
  - Vertigo [Recovering/Resolving]
  - Product use issue [Recovered/Resolved]
  - Syncope [Unknown]
  - Speech disorder [Unknown]

NARRATIVE: CASE EVENT DATE: 20151109
